FAERS Safety Report 8029353-2 (Version None)
Quarter: 2012Q1

REPORT INFORMATION
  Report Type: 
  Country: None (occurrence: None)
  Receive Date: 20120106
  Receipt Date: 20120104
  Transmission Date: 20120608
  Serious: Yes (Other)
  Sender: FDA-Public Use
  Company Number: NL-ABBOTT-11P-114-0856057-00

PATIENT
  Age: 40 Year
  Sex: Female

DRUGS (4)
  1. ZOLOFT [Concomitant]
     Indication: PRODUCT USED FOR UNKNOWN INDICATION
  2. CARBAMAZEPINE [Suspect]
     Indication: BORDERLINE PERSONALITY DISORDER
     Route: 048
     Dates: start: 19960101, end: 20110101
  3. LYRICA [Concomitant]
     Indication: PRODUCT USED FOR UNKNOWN INDICATION
  4. DEPAKENE [Suspect]
     Indication: BORDERLINE PERSONALITY DISORDER
     Dosage: DAILY DOSE: 300MG
     Route: 048
     Dates: start: 19960101, end: 20110101

REACTIONS (4)
  - VITAMIN B12 DEFICIENCY [None]
  - POLYCYSTIC OVARIES [None]
  - NEUROPATHY PERIPHERAL [None]
  - EPILEPSY [None]
